FAERS Safety Report 8390730-1 (Version None)
Quarter: 2012Q2

REPORT INFORMATION
  Report Type: 
  Country: None (occurrence: None)
  Receive Date: 20120529
  Receipt Date: 20120518
  Transmission Date: 20120825
  Serious: Yes (Hospitalization)
  Sender: FDA-Public Use
  Company Number: GB-JNJFOC-20120519472

PATIENT
  Age: 40 Year
  Sex: Female

DRUGS (6)
  1. AMITRIPTYLINE HCL [Concomitant]
     Route: 048
  2. AMITRIPTYLINE HCL [Concomitant]
     Route: 048
  3. FLUOXETINE [Concomitant]
     Indication: DEPRESSION
     Route: 048
  4. PALEXIA SR [Suspect]
     Indication: NEURALGIA
     Route: 048
     Dates: start: 20120101
  5. AMITRIPTYLINE HCL [Concomitant]
     Indication: NEURALGIA
     Route: 048
  6. AMITRIPTYLINE HCL [Concomitant]
     Indication: SLEEP DISORDER
     Route: 048

REACTIONS (5)
  - ANXIETY [None]
  - ABNORMAL DREAMS [None]
  - PALPITATIONS [None]
  - BRUXISM [None]
  - AGITATION [None]
